FAERS Safety Report 6348673-0 (Version None)
Quarter: 2009Q3

REPORT INFORMATION
  Report Type: 
  Country: None (occurrence: None)
  Receive Date: 20090911
  Receipt Date: 20090828
  Transmission Date: 20100115
  Serious: Yes (Other)
  Sender: FDA-Public Use
  Company Number: US-PFIZER INC-2009263200

PATIENT
  Sex: Female

DRUGS (7)
  1. SERTRALINE HCL [Suspect]
     Indication: DEPRESSION
     Dosage: UNK
     Dates: start: 20070101, end: 20080101
  2. SERTRALINE HCL [Suspect]
     Indication: ANXIETY
  3. ENBREL [Concomitant]
     Indication: ANKYLOSING SPONDYLITIS
  4. DIGOXIN [Concomitant]
     Indication: ARRHYTHMIA
  5. ATENOLOL [Concomitant]
     Indication: ARRHYTHMIA
  6. ATIVAN [Concomitant]
     Dosage: UNK, AS NEEDED
  7. ULTRAM [Concomitant]
     Dosage: UNK, AS NEEDED

REACTIONS (3)
  - ANXIETY [None]
  - DEPRESSION [None]
  - FLAT AFFECT [None]
